FAERS Safety Report 23385063 (Version 1)
Quarter: 2024Q1

REPORT INFORMATION
  Report Type: Spontaneous
  Country: US (occurrence: US)
  Receive Date: 20240109
  Receipt Date: 20240109
  Transmission Date: 20240410
  Serious: No
  Sender: FDA-Public Use
  Company Number: US-REATA PHARMACEUTICALS INC.-2023USRTAOMA000577

PATIENT

DRUGS (2)
  1. SKYCLARYS [Suspect]
     Active Substance: OMAVELOXOLONE
     Indication: Friedreich^s ataxia
     Dosage: 150 MILLIGRAM, QD
     Route: 048
     Dates: start: 20231019
  2. SKYCLARYS [Suspect]
     Active Substance: OMAVELOXOLONE
     Dosage: 50 MILLIGRAM, QD
     Route: 048
     Dates: start: 20231019, end: 20231110

REACTIONS (4)
  - Epistaxis [Unknown]
  - Tremor [Unknown]
  - Headache [None]
  - Diarrhoea [Unknown]

NARRATIVE: CASE EVENT DATE: 20230101
